FAERS Safety Report 7375884-8 (Version None)
Quarter: 2011Q1

REPORT INFORMATION
  Report Type: 
  Country: None (occurrence: None)
  Receive Date: 20110325
  Receipt Date: 20020923
  Transmission Date: 20110831
  Serious: Yes (Life-Threatening, Hospitalization, Disabling, Other)
  Sender: FDA-Public Use
  Company Number: B0280802A

PATIENT
  Age: 43 Year
  Sex: Female
  Weight: 78 kg

DRUGS (1)
  1. ZYBAN [Suspect]
     Dosage: 150MG UNKNOWN
     Route: 048
     Dates: start: 20020101

REACTIONS (16)
  - NAIL DISORDER [None]
  - ACUTE STRESS DISORDER [None]
  - CONJUNCTIVITIS [None]
  - SURGERY [None]
  - DEBRIDEMENT [None]
  - MUCOSAL EROSION [None]
  - ERYTHEMA [None]
  - WEIGHT INCREASED [None]
  - PHOTOPHOBIA [None]
  - BLEPHARITIS [None]
  - EYE DISORDER [None]
  - STEVENS-JOHNSON SYNDROME [None]
  - THERMAL BURN [None]
  - CHEMICAL INJURY [None]
  - KERATOPATHY [None]
  - PERSONALITY DISORDER [None]
